FAERS Safety Report 15570575 (Version 3)
Quarter: 2018Q4

REPORT INFORMATION
  Report Type: Report from Study
  Country: US (occurrence: US)
  Receive Date: 20181031
  Receipt Date: 20181203
  Transmission Date: 20190205
  Serious: Yes (Other)
  Sender: FDA-Public Use
  Company Number: US-SA-2018SA295898

PATIENT
  Age: 64 Year
  Sex: Female

DRUGS (2)
  1. NOVOLOG [Concomitant]
     Active Substance: INSULIN ASPART
  2. INSULIN GLARGINE [Suspect]
     Active Substance: INSULIN GLARGINE
     Indication: TYPE 2 DIABETES MELLITUS
     Dosage: 14 U, QD

REACTIONS (9)
  - Inability to afford medication [Unknown]
  - Blindness unilateral [Not Recovered/Not Resolved]
  - Immobilisation prolonged [Unknown]
  - Expired product administered [Unknown]
  - End stage renal disease [Unknown]
  - Eye haemorrhage [Not Recovered/Not Resolved]
  - Device breakage [Unknown]
  - Underdose [Unknown]
  - Blindness [Unknown]

NARRATIVE: CASE EVENT DATE: 201808
